FAERS Safety Report 5342816-3 (Version None)
Quarter: 2007Q2

REPORT INFORMATION
  Report Type: 
  Country: None (occurrence: None)
  Receive Date: 20070601
  Receipt Date: 20070524
  Transmission Date: 20071010
  Serious: Yes (Death, Hospitalization)
  Sender: FDA-Public Use
  Company Number: US-MERCK-0705USA02555

PATIENT
  Age: 56 Year
  Sex: Female

DRUGS (13)
  1. VYTORIN [Suspect]
     Indication: HYPERLIPIDAEMIA
     Route: 048
     Dates: end: 20061101
  2. VYTORIN [Suspect]
     Route: 048
     Dates: start: 20061129, end: 20070130
  3. PLAVIX [Concomitant]
     Route: 048
  4. ZOCOR [Concomitant]
     Indication: HYPERLIPIDAEMIA
     Route: 048
     Dates: start: 20061101, end: 20061128
  5. ZETIA [Concomitant]
     Indication: HYPERLIPIDAEMIA
     Route: 048
     Dates: start: 20061101, end: 20061128
  6. ASPIRIN [Concomitant]
     Route: 048
     Dates: end: 20070129
  7. ASPIRIN [Concomitant]
     Route: 048
     Dates: start: 20070130
  8. PRINIVIL [Concomitant]
     Route: 048
  9. PRINIVIL [Concomitant]
     Route: 048
  10. METOPROLOL [Concomitant]
     Route: 048
     Dates: end: 20070129
  11. METOPROLOL [Concomitant]
     Route: 048
     Dates: start: 20070130
  12. [THERAPY UNSPECIFIED] [Concomitant]
     Route: 065
  13. FERROUS SULFATE [Concomitant]
     Route: 048

REACTIONS (3)
  - ACUTE MYOCARDIAL INFARCTION [None]
  - DIVERTICULUM INTESTINAL HAEMORRHAGIC [None]
  - HEPATIC FAILURE [None]
